FAERS Safety Report 24678719 (Version 4)
Quarter: 2024Q4

REPORT INFORMATION
  Report Type: Report from Study
  Country: JP (occurrence: JP)
  Receive Date: 20241129
  Receipt Date: 20241224
  Transmission Date: 20250115
  Serious: Yes (Other)
  Sender: JOHNSON AND JOHNSON
  Company Number: JP-JNJFOC-20241167365

PATIENT
  Age: 87 Year
  Sex: Male

DRUGS (5)
  1. ERLEADA [Suspect]
     Active Substance: APALUTAMIDE
     Indication: Prostate cancer metastatic
     Route: 048
     Dates: start: 20241107, end: 20241125
  2. ERLEADA [Suspect]
     Active Substance: APALUTAMIDE
     Route: 048
     Dates: start: 20241211
  3. PREDONINE [Concomitant]
     Active Substance: PREDNISOLONE
     Indication: Myalgia
     Dosage: DOSE UNKNOWN
     Route: 048
  4. PREDONINE [Concomitant]
     Active Substance: PREDNISOLONE
     Dosage: DOSE UNKNOWN
     Route: 048
  5. PREDONINE [Concomitant]
     Active Substance: PREDNISOLONE
     Dosage: DOSE UNKNOWN
     Route: 048

REACTIONS (4)
  - Diverticulum intestinal haemorrhagic [Recovered/Resolved]
  - Dry skin [Not Recovered/Not Resolved]
  - Rash [Recovered/Resolved]
  - Dental caries [Not Recovered/Not Resolved]

NARRATIVE: CASE EVENT DATE: 20241110
